FAERS Safety Report 7962310-0 (Version None)
Quarter: 2011Q4

REPORT INFORMATION
  Report Type: 
  Country: None (occurrence: None)
  Receive Date: 20111207
  Receipt Date: 20111205
  Transmission Date: 20120403
  Serious: No
  Sender: FDA-Public Use
  Company Number: US-B.I. PHARMACEUTICALS,INC./RIDGEFIELD-2011-BP-27473BP

PATIENT
  Sex: Male

DRUGS (2)
  1. TRADJENTA [Suspect]
     Indication: TYPE 2 DIABETES MELLITUS
     Dosage: 5 MG
     Route: 048
     Dates: start: 20111129
  2. ZENPEP [Concomitant]
     Indication: PANCREATIC INSUFFICIENCY
     Dosage: 4500 U
     Route: 048
     Dates: start: 20110101

REACTIONS (1)
  - BLOOD GLUCOSE INCREASED [None]
